FAERS Safety Report 15459164 (Version 3)
Quarter: 2019Q3

REPORT INFORMATION
  Report Type: Spontaneous
  Country: US (occurrence: US)
  Receive Date: 20181003
  Receipt Date: 20190703
  Transmission Date: 20191004
  Serious: No
  Sender: FDA-Public Use
  Company Number: US-PFIZER INC-2018395853

PATIENT
  Age: 8 Year
  Sex: Male
  Weight: 29.5 kg

DRUGS (6)
  1. ESSENTIAL OILS NOS [Concomitant]
     Indication: DRY SKIN
     Dosage: UNK
  2. ESSENTIAL OILS NOS [Concomitant]
     Indication: PRURITUS
  3. EUCRISA [Suspect]
     Active Substance: CRISABOROLE
     Indication: ECZEMA
     Dosage: UNK
     Route: 061
     Dates: start: 20180413
  4. EUCRISA [Suspect]
     Active Substance: CRISABOROLE
     Indication: DERMATITIS ATOPIC
     Dosage: 20 MG, 2X/DAY
     Route: 061
     Dates: start: 201808
  5. EUCRISA [Suspect]
     Active Substance: CRISABOROLE
     Dosage: 20 MG, 2X/DAY
     Dates: start: 20180915, end: 201809
  6. FLOVENT [Concomitant]
     Active Substance: FLUTICASONE PROPIONATE
     Indication: ASTHMA
     Dosage: 2 PUFFS, 2X/DAY
     Dates: start: 2018

REACTIONS (6)
  - Application site ulcer [Unknown]
  - Application site irritation [Unknown]
  - Skin fissures [Recovered/Resolved]
  - Skin weeping [Recovered/Resolved]
  - Drug ineffective [Recovered/Resolved]
  - Application site pain [Recovered/Resolved]

NARRATIVE: CASE EVENT DATE: 201809
